FAERS Safety Report 15269625 (Version 3)
Quarter: 2018Q4

REPORT INFORMATION
  Report Type: Report from Study
  Country: None (occurrence: US)
  Receive Date: 20180813
  Receipt Date: 20181212
  Transmission Date: 20190204
  Serious: Yes (Hospitalization)
  Sender: FDA-Public Use
  Company Number: US-ABBVIE-18K-163-2448535-00

PATIENT
  Sex: Female
  Weight: 118.95 kg

DRUGS (3)
  1. HUMIRA [Suspect]
     Active Substance: ADALIMUMAB
     Indication: RHEUMATOID ARTHRITIS
     Route: 058
     Dates: start: 2018
  2. HUMIRA [Suspect]
     Active Substance: ADALIMUMAB
     Indication: PSORIATIC ARTHROPATHY
     Route: 058
     Dates: end: 201807
  3. LOVENOX [Suspect]
     Active Substance: ENOXAPARIN SODIUM
     Indication: PRODUCT USED FOR UNKNOWN INDICATION
     Route: 065

REACTIONS (7)
  - Cardiac failure congestive [Unknown]
  - Rash pruritic [Unknown]
  - Contusion [Unknown]
  - Hypersensitivity vasculitis [Recovered/Resolved]
  - Sinus congestion [Unknown]
  - Urticaria [Unknown]
  - Adverse drug reaction [Unknown]
